FAERS Safety Report 5069007-8 (Version None)
Quarter: 2006Q3

REPORT INFORMATION
  Report Type: 
  Country: None (occurrence: None)
  Receive Date: 20060802
  Receipt Date: 20060724
  Transmission Date: 20061208
  Serious: Yes (Other)
  Sender: FDA-Public Use
  Company Number: PHEH2006US09499

PATIENT
  Age: 56 Year
  Sex: Female

DRUGS (20)
  1. ZELNORM [Suspect]
     Indication: CONSTIPATION
     Dosage: 6 MG, BID
     Route: 048
     Dates: start: 20041119, end: 20060712
  2. NORTRIPTYLINE HCL [Concomitant]
     Dosage: 100 MG, UNK
  3. PREVACID [Concomitant]
     Dosage: 30 UNK, BID
  4. ADVAIR DISKUS 100/50 [Concomitant]
     Dosage: 100/50
  5. PERI-COLACE [Concomitant]
  6. NORVASC [Concomitant]
  7. LASIX [Concomitant]
     Dosage: 40 UNK, QD
  8. FENTANYL [Concomitant]
     Route: 062
  9. ZANAFLEX [Concomitant]
  10. ESTRADIOL INJ [Concomitant]
  11. SINGULAIR [Concomitant]
  12. ZYRTEC [Concomitant]
  13. AMBIEN [Concomitant]
  14. DONNATAL [Concomitant]
  15. CELEXA [Concomitant]
  16. ALBUTEROL SPIROS [Concomitant]
  17. CALCIUM GLUCONATE [Concomitant]
  18. CLONAZEPAM [Concomitant]
  19. SANCTURA [Concomitant]
  20. M.V.I. [Concomitant]

REACTIONS (4)
  - ABDOMINAL PAIN [None]
  - HAEMATOCHEZIA [None]
  - PAIN [None]
  - RECTAL HAEMORRHAGE [None]
